FAERS Safety Report 24647074 (Version 1)
Quarter: 2024Q4

REPORT INFORMATION
  Report Type: Spontaneous
  Country: CA (occurrence: CA)
  Receive Date: 20241121
  Receipt Date: 20241121
  Transmission Date: 20250115
  Serious: Yes (Hospitalization, Other)
  Sender: MERCK
  Company Number: CA-009507513-2411CAN007964

PATIENT
  Age: 65 Year
  Sex: Male

DRUGS (9)
  1. KEYTRUDA [Suspect]
     Active Substance: PEMBROLIZUMAB
     Dosage: THERAPY DURATION 2.0 DAYS
  2. ACETAMINOPHEN [Concomitant]
     Active Substance: ACETAMINOPHEN
     Dosage: UNK
  3. CAPSAICIN [Concomitant]
     Active Substance: CAPSAICIN
     Dosage: UNK
  4. BARLEY [Concomitant]
     Active Substance: BARLEY
     Dosage: UNK
     Route: 048
  5. CALCIUM CARBONATE [Concomitant]
     Active Substance: CALCIUM CARBONATE
  6. CHOLECALCIFEROL [Concomitant]
     Active Substance: CHOLECALCIFEROL
     Dosage: UNK
  7. HYDROMORPHONE [Concomitant]
     Active Substance: HYDROMORPHONE
     Dosage: UNK
  8. ICY HOT (MENTHOL) [Concomitant]
     Active Substance: MENTHOL
     Dosage: UNK
  9. PREGABALIN [Concomitant]
     Active Substance: PREGABALIN
     Dosage: UNK
     Route: 048

REACTIONS (15)
  - Pulmonary embolism [Recovering/Resolving]
  - Congenital dyskeratosis [Recovering/Resolving]
  - Erythema multiforme [Recovering/Resolving]
  - Pemphigoid [Recovering/Resolving]
  - Blister [Recovering/Resolving]
  - Eczema [Recovering/Resolving]
  - Eosinophilia [Recovering/Resolving]
  - Infection [Recovering/Resolving]
  - Lymphocytic infiltration [Recovering/Resolving]
  - Oedema peripheral [Recovering/Resolving]
  - Oxygen saturation decreased [Recovering/Resolving]
  - Parakeratosis [Recovering/Resolving]
  - Toxicity to various agents [Recovering/Resolving]
  - Pyrexia [Recovering/Resolving]
  - Rash [Recovering/Resolving]
